FAERS Safety Report 12673399 (Version 3)
Quarter: 2017Q1

REPORT INFORMATION
  Report Type: Spontaneous
  Country: US (occurrence: US)
  Receive Date: 20160822
  Receipt Date: 20170301
  Transmission Date: 20170428
  Serious: No
  Sender: FDA-Public Use
  Company Number: US-ACTELION-A-US2016-140783

PATIENT
  Age: 39 Year
  Sex: Female
  Weight: 57.6 kg

DRUGS (2)
  1. REVATIO [Concomitant]
     Active Substance: SILDENAFIL CITRATE
  2. TRACLEER [Suspect]
     Active Substance: BOSENTAN
     Indication: PULMONARY ARTERIAL HYPERTENSION
     Dosage: 125 MG, BID
     Route: 048
     Dates: start: 20150430

REACTIONS (7)
  - Weight increased [Unknown]
  - Dyspnoea [Unknown]
  - Drug dose omission [Unknown]
  - Peripheral swelling [Unknown]
  - Choking [Unknown]
  - Fatigue [Unknown]
  - Increased appetite [Unknown]
